FAERS Safety Report 13076414 (Version 1)
Quarter: 2016Q4

REPORT INFORMATION
  Report Type: Spontaneous
  Country: US (occurrence: US)
  Receive Date: 20161229
  Receipt Date: 20161229
  Transmission Date: 20170207
  Serious: Yes (Death, Other)
  Sender: FDA-Public Use
  Company Number: None

PATIENT
  Age: 44 Year
  Sex: Male

DRUGS (5)
  1. JUICE PLUS [Concomitant]
     Active Substance: DIETARY SUPPLEMENT
  2. ABILIFY [Suspect]
     Active Substance: ARIPIPRAZOLE
     Indication: MAJOR DEPRESSION
     Dates: start: 20140801, end: 20160723
  3. REMICADE [Concomitant]
     Active Substance: INFLIXIMAB
  4. LEXAPRO [Concomitant]
     Active Substance: ESCITALOPRAM OXALATE
  5. MEDICATION FOR ULCERATIVE COLITIS [Concomitant]

REACTIONS (3)
  - Completed suicide [None]
  - Gambling [None]
  - Affective disorder [None]
